FAERS Safety Report 7409722-1 (Version None)
Quarter: 2011Q2

REPORT INFORMATION
  Report Type: 
  Country: None (occurrence: None)
  Receive Date: 20110412
  Receipt Date: 20110407
  Transmission Date: 20111010
  Serious: Yes (Other)
  Sender: FDA-Public Use
  Company Number: US-ABBOTT-11P-163-0717601-00

PATIENT
  Sex: Female
  Weight: 95.34 kg

DRUGS (25)
  1. ALEVE [Concomitant]
     Indication: PAIN
  2. CALCIUM CITRATE W/VITAMIN D NOS [Concomitant]
     Indication: BONE DISORDER
  3. MIRALAX [Concomitant]
     Indication: CONSTIPATION
  4. MULTI-VITAMIN [Concomitant]
     Indication: VITAMIN SUPPLEMENTATION
  5. CLONAZEPAM [Concomitant]
     Indication: ANXIETY
  6. CLONAZEPAM [Concomitant]
     Indication: TREMOR
  7. LUNESTA [Concomitant]
     Indication: INSOMNIA
  8. ASPIRIN [Concomitant]
     Indication: PROPHYLAXIS
  9. ATENOLOL [Concomitant]
     Indication: HYPERTENSION
  10. HYDROCODONE [Concomitant]
     Indication: PAIN
  11. HUMIRA [Suspect]
     Indication: RHEUMATOID ARTHRITIS
     Dates: start: 20090901
  12. BUPROPION HYDROCHLORIDE [Concomitant]
     Indication: DEPRESSION
  13. EFFEXOR XR [Concomitant]
     Indication: DEPRESSION
  14. NEXIUM [Concomitant]
     Indication: GASTROOESOPHAGEAL REFLUX DISEASE
  15. MACRODANTIN [Concomitant]
     Indication: URINARY TRACT INFECTION
  16. VITAMIN B COMPLEX CAP [Concomitant]
     Indication: VITAMIN SUPPLEMENTATION
  17. LEVOTHYROXINE [Concomitant]
     Indication: HYPOTHYROIDISM
  18. FOLIC ACID [Concomitant]
     Indication: VITAMIN SUPPLEMENTATION
  19. ASPIRIN [Concomitant]
     Indication: CEREBROVASCULAR ACCIDENT
  20. FLUDROCORTISONE [Concomitant]
     Indication: ADDISON'S DISEASE
  21. AMLODIPINE [Concomitant]
     Indication: HYPERTENSION
  22. DOCUSATE SODIUM [Concomitant]
     Indication: CONSTIPATION
  23. HYDROXYCHLOROQUINE SULFATE [Concomitant]
     Indication: RHEUMATOID ARTHRITIS
  24. TRAZODONE HCL [Concomitant]
     Indication: INSOMNIA
  25. ADVANCED ESTER-C [Concomitant]
     Indication: VITAMIN SUPPLEMENTATION

REACTIONS (9)
  - DYSPNOEA [None]
  - MALAISE [None]
  - PYREXIA [None]
  - ARTHROPATHY [None]
  - BRONCHITIS [None]
  - FATIGUE [None]
  - WHITE BLOOD CELL COUNT INCREASED [None]
  - TREMOR [None]
  - OXYGEN SATURATION ABNORMAL [None]
